FAERS Safety Report 4919651-0 (Version None)
Quarter: 2006Q1

REPORT INFORMATION
  Report Type: 
  Country: None (occurrence: None)
  Receive Date: 20060216
  Receipt Date: 20060202
  Transmission Date: 20060701
  Serious: Yes (Death)
  Sender: FDA-Public Use
  Company Number: 2006P1000095

PATIENT
  Age: 77 Year
  Sex: Male

DRUGS (12)
  1. RETEPLASE (RETEPLASE) [Suspect]
     Indication: ACUTE MYOCARDIAL INFARCTION
     Dosage: SEE IMAGE
     Route: 042
     Dates: start: 20040301, end: 20040301
  2. HEPARIN SODIUM [Suspect]
     Indication: ACUTE MYOCARDIAL INFARCTION
     Dosage: 45 IU; 1X; IV
     Route: 042
     Dates: start: 20040315, end: 20040315
  3. ASA (ACETYLSALICYLIC AICD) [Suspect]
     Indication: MYOCARDIAL ISCHAEMIA
     Dosage: 100 MG; QD; PO
     Route: 048
     Dates: start: 20040220, end: 20040315
  4. CLOPIDOGREL BISULFATE [Suspect]
     Indication: MYOCARDIAL INFARCTION
     Dosage: 600 MG; 1X; PO
     Route: 048
     Dates: start: 20040315, end: 20040315
  5. GLYCERYL TRINITRATE [Concomitant]
  6. MORPHINE SULFATE [Concomitant]
  7. ZOLOFT [Concomitant]
  8. PERINDOPRIL [Concomitant]
  9. SIMVASTATIN [Concomitant]
  10. FUROSEMIDE [Concomitant]
  11. METOPROLOL TARTRATE [Concomitant]
  12. NITRODERM [Concomitant]

REACTIONS (2)
  - BRAIN STEM HAEMORRHAGE [None]
  - COMA [None]
